FAERS Safety Report 25623159 (Version 4)
Quarter: 2025Q3

REPORT INFORMATION
  Report Type: Spontaneous
  Country: US (occurrence: US)
  Receive Date: 20250730
  Receipt Date: 20250908
  Transmission Date: 20251020
  Serious: Yes (Hospitalization, Disabling)
  Sender: PFIZER
  Company Number: US-PFIZER INC-202500152267

PATIENT
  Age: 77 Year
  Sex: Female
  Weight: 62.14 kg

DRUGS (46)
  1. XELJANZ [Suspect]
     Active Substance: TOFACITINIB CITRATE
     Indication: Rheumatoid arthritis
     Dosage: TAKE 1 TABLET TWICE A DAY BY ORAL ROUTE
     Route: 048
  2. XELJANZ [Suspect]
     Active Substance: TOFACITINIB CITRATE
     Indication: Osteoarthritis
     Dosage: 5 MG, 2X/DAY (ONCE IN MORNING AND ONCE AT NIGHT)
     Route: 048
     Dates: start: 20150615
  3. ACETAMINOPHEN [Concomitant]
     Active Substance: ACETAMINOPHEN
     Indication: Pain
     Route: 048
     Dates: start: 20250702
  4. ACETAMINOPHEN\HYDROCODONE [Concomitant]
     Active Substance: ACETAMINOPHEN\HYDROCODONE
     Indication: Pain
     Route: 048
     Dates: start: 20250703
  5. ACETAMINOPHEN\HYDROCODONE [Concomitant]
     Active Substance: ACETAMINOPHEN\HYDROCODONE
     Route: 048
  6. ANUCORT-HC [Concomitant]
     Active Substance: HYDROCORTISONE ACETATE
     Route: 054
  7. AMLODIPINE [Concomitant]
     Active Substance: AMLODIPINE BESYLATE
     Dosage: TAKE 1/2 TABLET BY MOUTH ONCE DAILY IN THE EVENING
     Route: 048
  8. ARIPIPRAZOLE [Concomitant]
     Active Substance: ARIPIPRAZOLE
     Indication: Depression
     Dosage: 1 TABLET BY MOUTH ONE TIME A DAY
     Route: 048
     Dates: start: 20250701
  9. ARIPIPRAZOLE [Concomitant]
     Active Substance: ARIPIPRAZOLE
     Indication: Crying
  10. ARIPIPRAZOLE [Concomitant]
     Active Substance: ARIPIPRAZOLE
     Indication: Mania
  11. ATORVASTATIN CALCIUM [Concomitant]
     Active Substance: ATORVASTATIN CALCIUM
     Indication: Hyperlipidaemia
     Dosage: 1 TABLET BY MOUTH AT BEDTIME
     Route: 048
     Dates: start: 20250628
  12. CLOPIDOGREL [Concomitant]
     Active Substance: CLOPIDOGREL BISULFATE
     Dosage: TAKE 1 TABLET BY MOUTH ONCE DAILY
     Route: 048
  13. DIAZEPAM [Concomitant]
     Active Substance: DIAZEPAM
     Indication: Muscle spasms
     Route: 048
     Dates: start: 20250628
  14. DIGOXIN [Concomitant]
     Active Substance: DIGOXIN
     Indication: Atrial fibrillation
     Dosage: 1 TABLET BY MOUTH ONE TIME A DAY
     Route: 048
     Dates: start: 20250701
  15. DIGOXIN [Concomitant]
     Active Substance: DIGOXIN
     Dosage: TAKE 1 TABLET BY MOUTH ONCE DAILY FOR 90 DAYS
     Route: 048
  16. ESTRADIOL [Concomitant]
     Active Substance: ESTRADIOL
     Dosage: TAKE 1/2 (ONE-HALF) TABLET BY MOUTH ONCE DAILY
     Route: 048
  17. FENOFIBRATE [Concomitant]
     Active Substance: FENOFIBRATE
     Dosage: TAKE 1 TABLET BY MOUTH ONCE DAILY
     Route: 048
  18. FERROUS SULFATE [Concomitant]
     Active Substance: FERROUS SULFATE
     Indication: Anaemia
     Dosage: 1 TABLET BY MOUTH ONE TIME A DAY
     Route: 048
     Dates: start: 20250712
  19. FUROSEMIDE [Concomitant]
     Active Substance: FUROSEMIDE
     Indication: Oedema
     Dosage: TAKE 1 TABLET BY MOUTH ONCE DAILY
     Route: 048
  20. LISINOPRIL [Concomitant]
     Active Substance: LISINOPRIL
     Indication: Hypertension
     Dosage: 1 TABLET BY MOUTH ONE TIME A DAY
     Route: 048
     Dates: start: 20250629
  21. LISINOPRIL [Concomitant]
     Active Substance: LISINOPRIL
     Dosage: TAKE 1 TABLET BY MOUTH ONCE DAILY
     Route: 048
  22. MAGNESIUM OXIDE [Concomitant]
     Active Substance: MAGNESIUM OXIDE
     Dosage: TAKE 2 TABLETS EVERY DAY BY ORAL ROUTE
     Route: 048
  23. METOPROLOL SUCCINATE [Concomitant]
     Active Substance: METOPROLOL SUCCINATE
     Dosage: ER EXTENDED RELEASE 24 HR; TAKE 2 TABLETS EVERY DAY BY ORAL ROUTE
     Route: 048
  24. MILK OF MAGNESIA [Concomitant]
     Active Substance: MAGNESIUM HYDROXIDE
     Indication: Constipation
     Route: 048
     Dates: start: 20250628
  25. MONTELUKAST SODIUM [Concomitant]
     Active Substance: MONTELUKAST SODIUM
     Indication: Hypersensitivity
     Dosage: 1 TABLET BY MOUTH ONE TIME A DAY
     Route: 048
     Dates: start: 20250629
  26. MONTELUKAST SODIUM [Concomitant]
     Active Substance: MONTELUKAST SODIUM
     Dosage: TAKE 1 TABLET BY MOUTH EVERY DAY
     Route: 048
  27. MINERALS\VITAMINS [Concomitant]
     Active Substance: MINERALS\VITAMINS
     Dosage: 1 TABLET BY MOUTH ONE TIME A DAY
     Route: 048
     Dates: start: 20250630, end: 20250730
  28. NALOXONE HCL [Concomitant]
     Active Substance: NALOXONE HYDROCHLORIDE
     Dates: start: 20250629
  29. NORTRIPTYLINE [Concomitant]
     Active Substance: NORTRIPTYLINE
     Dosage: TAKE 2 CAPSULES BY MOUTH IN THE EVENING
     Route: 048
  30. NORTRIPTYLINE HYDROCHLORIDE [Concomitant]
     Active Substance: NORTRIPTYLINE HYDROCHLORIDE
     Indication: Depression
     Dosage: GIVE 2 CAPSULE BY MOUTH AT BEDTIME
     Route: 048
     Dates: start: 20250628
  31. NORTRIPTYLINE HYDROCHLORIDE [Concomitant]
     Active Substance: NORTRIPTYLINE HYDROCHLORIDE
     Indication: Crying
  32. ONDANSETRON [Concomitant]
     Active Substance: ONDANSETRON
     Indication: Vomiting
     Route: 048
     Dates: start: 20250628
  33. ONDANSETRON [Concomitant]
     Active Substance: ONDANSETRON
     Indication: Nausea
  34. PANTOPRAZOLE [Concomitant]
     Active Substance: PANTOPRAZOLE
     Dosage: DELAYED RELEASE TAKE 1 TABLET BY MOUTH TWICE DAILY ON AN EMPTY STOMACH
     Route: 048
  35. PANTOPRAZOLE SODIUM [Concomitant]
     Active Substance: PANTOPRAZOLE SODIUM
     Indication: Gastrooesophageal reflux disease
     Dosage: 1 TABLET BY MOUTH TWO TIMES A DAY
     Route: 048
     Dates: start: 20250628
  36. POLYETHYLENE GLYCOL 3350 [Concomitant]
     Active Substance: POLYETHYLENE GLYCOL 3350
     Indication: Bowel movement irregularity
     Dosage: 17 GRAM BY MOUTH ONE TIME A DAY
     Route: 048
     Dates: start: 20250703
  37. POTASSIUM CHLORIDE EXTENDED RELEASE [Concomitant]
     Active Substance: POTASSIUM CHLORIDE
     Dosage: TAKE 1 TABLET BY MOUTH ONCE DAILY
     Route: 048
  38. PREDNISONE [Concomitant]
     Active Substance: PREDNISONE
     Indication: Rheumatoid arthritis
     Dosage: 1 TABLET BY MOUTH ONE TIME A DAY
     Route: 048
     Dates: start: 20250701
  39. PREDNISONE [Concomitant]
     Active Substance: PREDNISONE
     Dosage: TAKE 1/2 TABLET BY MOUTH ONCE DAILY
     Route: 048
  40. SERTRALINE [Concomitant]
     Active Substance: SERTRALINE HYDROCHLORIDE
     Dosage: TAKE 1 TABLET BY MOUTH TWICE DAILY
     Route: 048
  41. SERTRALINE HYDROCHLORIDE [Concomitant]
     Active Substance: SERTRALINE HYDROCHLORIDE
     Indication: Depression
     Dosage: 1 TABLET BY MOUTH TWO TIMES A DAY
     Route: 048
     Dates: start: 20250628
  42. SERTRALINE HYDROCHLORIDE [Concomitant]
     Active Substance: SERTRALINE HYDROCHLORIDE
     Indication: Crying
  43. SYNTHROID [Concomitant]
     Active Substance: LEVOTHYROXINE SODIUM
     Indication: Hypothyroidism
     Dosage: 1 TABLET BY MOUTH ONE TIME A DAY
     Route: 048
     Dates: start: 20250629
  44. SYNTHROID [Concomitant]
     Active Substance: LEVOTHYROXINE SODIUM
     Dosage: TAKE 1 TABLET DAILY BY MOUTH ONCE A DAY
     Route: 048
  45. TUBERSOL [Concomitant]
     Active Substance: TUBERCULIN PURIFIED PROTEIN DERIVATIVE
     Indication: Tuberculin test
     Dosage: INJECT 0.1 MI INTRADERMALLY EVERY NIGHT SHIFT EVERY 12 MONTH(S) STARTING ON THE LAST DAY OF MONTH
     Route: 023
     Dates: start: 20250630
  46. VITAMIN D3 [Concomitant]
     Active Substance: CHOLECALCIFEROL

REACTIONS (3)
  - Spinal fracture [Recovering/Resolving]
  - Fall [Recovering/Resolving]
  - Memory impairment [Recovering/Resolving]

NARRATIVE: CASE EVENT DATE: 20250601
